FAERS Safety Report 7568439-3 (Version None)
Quarter: 2011Q2

REPORT INFORMATION
  Report Type: 
  Country: None (occurrence: None)
  Receive Date: 20110617
  Receipt Date: 20110614
  Transmission Date: 20111010
  Serious: Yes (Death)
  Sender: FDA-Public Use
  Company Number: 1000020738

PATIENT
  Age: 26 Year
  Sex: Male
  Weight: 96.16 kg

DRUGS (9)
  1. MORPHINE [Suspect]
  2. XANAX [Suspect]
  3. COCAINE (COCAINE) [Suspect]
  4. ESCITALOPRAM OXALATE [Suspect]
  5. OXYCODONE HCL [Suspect]
  6. THC-COOH (CANNABIS) [Suspect]
  7. HYDROXYZINE [Suspect]
  8. IBUPROFEN [Suspect]
  9. QUETIAPINE FUMARATE [Suspect]

REACTIONS (10)
  - ACCIDENT [None]
  - BLOOD GLUCOSE DECREASED [None]
  - BLOOD POTASSIUM INCREASED [None]
  - TOXICITY TO VARIOUS AGENTS [None]
  - PULMONARY CONGESTION [None]
  - CARDIOMEGALY [None]
  - PULMONARY OEDEMA [None]
  - BLOOD SODIUM DECREASED [None]
  - BLOOD CHLORIDE INCREASED [None]
  - BLOOD UREA INCREASED [None]
